FAERS Safety Report 25306628 (Version 6)
Quarter: 2025Q3

REPORT INFORMATION
  Report Type: Spontaneous
  Country: US (occurrence: US)
  Receive Date: 20250513
  Receipt Date: 20250910
  Transmission Date: 20251021
  Serious: No
  Sender: BIOGEN
  Company Number: US-BIOGEN-2025BI01306901

PATIENT
  Sex: Female

DRUGS (16)
  1. AVONEX [Suspect]
     Active Substance: INTERFERON BETA-1A
     Indication: Multiple sclerosis
     Dosage: CURRENT THERAPY
     Route: 050
  2. AVONEX [Suspect]
     Active Substance: INTERFERON BETA-1A
     Route: 050
     Dates: start: 20040322, end: 20050724
  3. AVONEX [Suspect]
     Active Substance: INTERFERON BETA-1A
     Route: 050
     Dates: start: 2018
  4. AVONEX [Suspect]
     Active Substance: INTERFERON BETA-1A
  5. HYDROCHLOROTHIAZIDE\LOSARTAN POTASSIUM [Concomitant]
     Active Substance: HYDROCHLOROTHIAZIDE\LOSARTAN POTASSIUM
     Route: 050
  6. TRAMADOL HCL [Concomitant]
     Active Substance: TRAMADOL HYDROCHLORIDE
     Route: 050
  7. VITAMIN D3 [Concomitant]
     Active Substance: CHOLECALCIFEROL
     Route: 050
  8. FLUTICASONE PROPIONATE [Concomitant]
     Active Substance: FLUTICASONE PROPIONATE
     Route: 050
  9. VITAMINS [Concomitant]
     Active Substance: VITAMINS
     Route: 050
  10. VITAMIN C [Concomitant]
     Active Substance: ASCORBIC ACID
     Route: 050
  11. DESONIDE [Concomitant]
     Active Substance: DESONIDE
     Route: 050
  12. LEVOTHYROXINE SODIUM [Concomitant]
     Active Substance: LEVOTHYROXINE SODIUM
     Route: 050
  13. ROSUVASTATIN CALCIUM [Concomitant]
     Active Substance: ROSUVASTATIN CALCIUM
     Route: 050
  14. SELENIUM [Concomitant]
     Active Substance: SELENIUM
     Route: 050
  15. GABAPENTIN [Concomitant]
     Active Substance: GABAPENTIN
     Route: 050
  16. MECLIZINE HYDROCHLORIDE [Concomitant]
     Active Substance: MECLIZINE HYDROCHLORIDE
     Route: 050

REACTIONS (6)
  - Injection site mass [Not Recovered/Not Resolved]
  - Spinal stenosis [Unknown]
  - COVID-19 [Unknown]
  - Injection site pain [Unknown]
  - Injection site bruising [Unknown]
  - Injection site swelling [Recovered/Resolved]

NARRATIVE: CASE EVENT DATE: 20250101
